FAERS Safety Report 12106278 (Version 1)
Quarter: 2016Q1

REPORT INFORMATION
  Report Type: Spontaneous
  Country: CA (occurrence: CA)
  Receive Date: 20160223
  Receipt Date: 20160223
  Transmission Date: 20160526
  Serious: Yes (Other)
  Sender: FDA-Public Use
  Company Number: CA-WATSON-2016-03350

PATIENT
  Age: 46 Year
  Sex: Male
  Weight: 72.5 kg

DRUGS (17)
  1. RIFAMPICIN (UNKNOWN) [Interacting]
     Active Substance: RIFAMPIN
     Indication: PULMONARY TUBERCULOSIS
     Dosage: 600 MG, DAILY
     Route: 065
  2. RIFAMPICIN (UNKNOWN) [Interacting]
     Active Substance: RIFAMPIN
     Dosage: 600 MG, DAILY
     Route: 065
  3. MOXIFLOXACIN (UNKNOWN) [Suspect]
     Active Substance: MOXIFLOXACIN
     Dosage: 600 MG, DAILY
     Route: 065
  4. ISONIAZID. [Suspect]
     Active Substance: ISONIAZID
     Dosage: 450 MG, DAILY
     Route: 065
  5. PYRAZINAMIDE. [Suspect]
     Active Substance: PYRAZINAMIDE
     Indication: PULMONARY TUBERCULOSIS
     Dosage: 1800 MG, DAILY
     Route: 065
  6. ISONIAZID. [Suspect]
     Active Substance: ISONIAZID
     Indication: PULMONARY TUBERCULOSIS
     Dosage: 300 MG, DAILY
     Route: 065
  7. TENOFOVIR + EMTRICITABINE + EFAVIRANZ [Interacting]
     Active Substance: EFAVIRENZ\EMTRICITABINE\TENOFOVIR DISOPROXIL FUMARATE
     Indication: HIV INFECTION
     Dosage: FIXED COMBINATION OF TENOFOVIR 300 MG, EMTRICITABINE 200 MG, AND EFV 600 MG
     Route: 065
  8. ETHAMBUTOL [Suspect]
     Active Substance: ETHAMBUTOL HYDROCHLORIDE
     Indication: PULMONARY TUBERCULOSIS
     Dosage: 1400 MG, DAILY
     Route: 065
  9. ETHAMBUTOL [Suspect]
     Active Substance: ETHAMBUTOL HYDROCHLORIDE
     Dosage: 1000 MG, 5 TIMES WEEKLY
     Route: 065
  10. RIFAMPICIN (UNKNOWN) [Interacting]
     Active Substance: RIFAMPIN
     Dosage: 750 MG, 5 TIMES WEEKLY
     Route: 065
  11. ETHAMBUTOL [Suspect]
     Active Substance: ETHAMBUTOL HYDROCHLORIDE
     Dosage: 1200 MG, DAILY
     Route: 065
  12. RIFAMPICIN (UNKNOWN) [Interacting]
     Active Substance: RIFAMPIN
     Dosage: GRADUALLY TITRATED TO 1500 MG, 5 TIMES WEEKLY
     Route: 065
  13. MOXIFLOXACIN (UNKNOWN) [Suspect]
     Active Substance: MOXIFLOXACIN
     Indication: PULMONARY TUBERCULOSIS
     Dosage: 600 MG, DAILY
     Route: 065
  14. MOXIFLOXACIN (UNKNOWN) [Suspect]
     Active Substance: MOXIFLOXACIN
     Dosage: 600 MG, 5 TIMES WEEKLY
     Route: 065
  15. EFAVIRENZ (UNKNOWN) [Interacting]
     Active Substance: EFAVIRENZ
     Indication: HIV INFECTION
     Dosage: 800 MG, DAILY
     Route: 065
  16. MOXIFLOXACIN (UNKNOWN) [Suspect]
     Active Substance: MOXIFLOXACIN
     Dosage: 800 MG, UNKNOWN
     Route: 065
  17. ETHAMBUTOL [Suspect]
     Active Substance: ETHAMBUTOL HYDROCHLORIDE
     Dosage: 1600 MG, UNKNOWN

REACTIONS (4)
  - Drug interaction [Unknown]
  - Transaminases increased [Unknown]
  - Drug level below therapeutic [Recovered/Resolved]
  - Drug level above therapeutic [Unknown]
